FAERS Safety Report 8329247-9 (Version None)
Quarter: 2012Q2

REPORT INFORMATION
  Report Type: 
  Country: None (occurrence: None)
  Receive Date: 20120430
  Receipt Date: 20120416
  Transmission Date: 20120825
  Serious: Yes (Death)
  Sender: FDA-Public Use
  Company Number: 1263845

PATIENT
  Sex: Male

DRUGS (6)
  1. LISINOPRIL [Concomitant]
  2. METOPROLOL TARTRATE [Concomitant]
  3. ASPIRIN [Concomitant]
  4. AMIODARONE HCL [Suspect]
     Indication: ATRIAL FIBRILLATION
     Dosage: 400 MG TWICE DAILY
  5. CLOPIDOGREL [Concomitant]
  6. ATORVASTATIN CALCIUM [Concomitant]

REACTIONS (3)
  - RESPIRATORY FAILURE [None]
  - PULMONARY ALVEOLAR HAEMORRHAGE [None]
  - ACUTE RESPIRATORY DISTRESS SYNDROME [None]
